FAERS Safety Report 16035229 (Version 1)
Quarter: 2019Q1

REPORT INFORMATION
  Report Type: Spontaneous
  Country: US (occurrence: US)
  Receive Date: 20190305
  Receipt Date: 20190305
  Transmission Date: 20190418
  Serious: No
  Sender: FDA-Public Use
  Company Number: US-SA-2019SA055097

PATIENT
  Sex: Female

DRUGS (2)
  1. DUPIXENT [Suspect]
     Active Substance: DUPILUMAB
     Indication: DERMATITIS ATOPIC
     Dosage: 300 UNK, QW
     Route: 058
     Dates: start: 20180430
  2. PENICILLIN B [Concomitant]
     Active Substance: PHENETICILLIN

REACTIONS (2)
  - Tooth extraction [Unknown]
  - Product dose omission [Unknown]
